FAERS Safety Report 10563557 (Version 2)
Quarter: 2014Q4

REPORT INFORMATION
  Report Type: Spontaneous
  Country: US (occurrence: US)
  Receive Date: 20141104
  Receipt Date: 20141105
  Transmission Date: 20150529
  Serious: No
  Sender: FDA-Public Use
  Company Number: US-PFIZER INC-2014303400

PATIENT
  Age: 52 Year
  Sex: Female
  Weight: 88 kg

DRUGS (3)
  1. CELEBREX [Suspect]
     Active Substance: CELECOXIB
     Indication: FIBROMYALGIA
  2. SYNTHROID [Concomitant]
     Active Substance: LEVOTHYROXINE SODIUM
     Indication: THYROID DISORDER
     Dosage: 175 UG, DAILY
     Route: 048
  3. CELEBREX [Suspect]
     Active Substance: CELECOXIB
     Indication: SYSTEMIC LUPUS ERYTHEMATOSUS
     Dosage: 200 MG, DAILY
     Route: 048
     Dates: start: 201408, end: 20141030

REACTIONS (5)
  - Mobility decreased [Not Recovered/Not Resolved]
  - Feeling abnormal [Unknown]
  - Joint swelling [Not Recovered/Not Resolved]
  - Pain [Not Recovered/Not Resolved]
  - Headache [Not Recovered/Not Resolved]

NARRATIVE: CASE EVENT DATE: 20141101
